FAERS Safety Report 9729757 (Version 1)
Quarter: 2013Q4

REPORT INFORMATION
  Report Type: Spontaneous
  Country: US (occurrence: US)
  Receive Date: 20131204
  Receipt Date: 20131204
  Transmission Date: 20140711
  Serious: No
  Sender: FDA-Public Use
  Company Number: US-GILEAD-2009-0022426

PATIENT
  Sex: Male
  Weight: 78.47 kg

DRUGS (16)
  1. LETAIRIS [Suspect]
     Indication: PULMONARY ARTERIAL HYPERTENSION
     Route: 048
     Dates: start: 20090520
  2. LASIX [Concomitant]
  3. DILTIAZEM [Concomitant]
  4. MINOXIDIL [Concomitant]
  5. ZOMETA [Concomitant]
  6. LANTUS [Concomitant]
  7. NOVOLOG [Concomitant]
  8. KETOCONAZOLE [Concomitant]
  9. CITALOPRAM [Concomitant]
  10. ASPIRIN [Concomitant]
  11. ZOLADEX [Concomitant]
  12. PROVIGIL [Concomitant]
  13. HYDROCORTISONE [Concomitant]
  14. FISH OIL [Concomitant]
  15. CALCIUM + D [Concomitant]
  16. VITAMIN D [Concomitant]

REACTIONS (1)
  - Dyspnoea [Unknown]
